FAERS Safety Report 23052946 (Version 2)
Quarter: 2023Q4

REPORT INFORMATION
  Report Type: Report from Study
  Country: US (occurrence: US)
  Receive Date: 20231011
  Receipt Date: 20231016
  Transmission Date: 20240110
  Serious: Yes (Other)
  Sender: FDA-Public Use
  Company Number: US-ABBVIE-5335220

PATIENT
  Sex: Female
  Weight: 11 kg

DRUGS (9)
  1. VENCLEXTA [Suspect]
     Active Substance: VENETOCLAX
     Indication: Acute myeloid leukaemia
     Dosage: TAKE 1 TABLET BY MOUTH ALONG WITH THREE 50MG TABLETS DAILY WITH FOOD AND WATER FOR A TOTAL DOSE O...
     Route: 048
     Dates: start: 20230716
  2. LEVAQUIN [Concomitant]
     Active Substance: LEVOFLOXACIN
     Indication: Product used for unknown indication
     Dosage: 25 MG/ML SOLUTION?DISPENSE 63 ML
  3. ZINC OXIDE [Concomitant]
     Active Substance: ZINC OXIDE
     Indication: Product used for unknown indication
     Dosage: 40% PASTE?APPLY 1 APPLICATION EXTERNALLY AS NEEDED FOR WITH DIAPER CHANGES.
  4. ZOFRAN [Concomitant]
     Active Substance: ONDANSETRON HYDROCHLORIDE
     Indication: Product used for unknown indication
     Dosage: 0.8 MG/ML?4 MG/5 ML SOLUTION?ON AZACITIDINE DAYS, THEN EVERY 8 HOURS IF NEEDED FOR NAUSEA/VOMITING
  5. SULFATRIM [Concomitant]
     Active Substance: SULFAMETHOXAZOLE\TRIMETHOPRIM
     Indication: Product used for unknown indication
     Dosage: 40-8 MG/ML?200-40 MG/ML SUSPENSION?MONDAY AND TUESDAY, 9 AM/ 9 PM
  6. ZOVIRAX [Concomitant]
     Active Substance: ACYCLOVIR
     Indication: Product used for unknown indication
     Dosage: 40 MG/ML 200 MG/5ML SUSPENTION?IN NG TUBE 9 AM/ 9 PM
  7. BENADRYL [Concomitant]
     Active Substance: DIPHENHYDRAMINE HYDROCHLORIDE
     Indication: Product used for unknown indication
     Dosage: 2.5 MG/ML, 12.5 MG/5ML ELIXIR ?AS NEEDED ?NAUSEA/VOMITING GIVE WITH METOCLOPRAMIDE
  8. REGLAN [Concomitant]
     Active Substance: METOCLOPRAMIDE HYDROCHLORIDE
     Indication: Product used for unknown indication
     Dosage: 1 MG/ML SOLUTION?NAUSEA/VOMITING?USE WITH DIPHENHYDRAMINE
     Route: 048
  9. CYTARABINE [Suspect]
     Active Substance: CYTARABINE
     Indication: Acute myeloid leukaemia
     Dosage: HIGH DOSE?1 G/M^2
     Route: 065

REACTIONS (11)
  - Pancytopenia [Unknown]
  - Immunosuppression [Unknown]
  - Off label use [Not Recovered/Not Resolved]
  - Disease risk factor [Unknown]
  - Nausea [Unknown]
  - Dermatitis diaper [Unknown]
  - Erythema [Unknown]
  - Hyperphosphataemia [Unknown]
  - Fatigue [Unknown]
  - Blood calcium increased [Unknown]
  - Condition aggravated [Unknown]

NARRATIVE: CASE EVENT DATE: 20230101
